FAERS Safety Report 12910096 (Version 1)
Quarter: 2016Q4

REPORT INFORMATION
  Report Type: Spontaneous
  Country: US (occurrence: US)
  Receive Date: 20161102
  Receipt Date: 20161102
  Transmission Date: 20170207
  Serious: No
  Sender: FDA-Public Use
  Company Number: None

PATIENT
  Age: 61 Year
  Sex: Male

DRUGS (1)
  1. EPCLUSA [Suspect]
     Active Substance: SOFOSBUVIR\VELPATASVIR
     Indication: CHRONIC HEPATITIS C
     Dosage: 400-100 1QD ORAL
     Route: 048
     Dates: start: 20161010

REACTIONS (5)
  - Sleep disorder [None]
  - Headache [None]
  - Gastric disorder [None]
  - Fatigue [None]
  - Fibromyalgia [None]

NARRATIVE: CASE EVENT DATE: 20161102
